FAERS Safety Report 21142729 (Version 1)
Quarter: 2022Q3

REPORT INFORMATION
  Report Type: Spontaneous
  Country: CZ (occurrence: None)
  Receive Date: 20220728
  Receipt Date: 20220728
  Transmission Date: 20221026
  Serious: Yes (Hospitalization, Other)
  Sender: FDA-Public Use
  Company Number: 2022A265174

PATIENT
  Age: 62 Year
  Sex: Female
  Weight: 147 kg

DRUGS (8)
  1. IMFINZI [Suspect]
     Active Substance: DURVALUMAB
     Indication: Lung neoplasm malignant
     Dosage: 500.0MG UNKNOWN
     Route: 040
     Dates: start: 20220311, end: 20220311
  2. IMFINZI [Suspect]
     Active Substance: DURVALUMAB
     Indication: Lung neoplasm malignant
     Dosage: 500.0MG UNKNOWN
     Route: 040
     Dates: start: 20220503, end: 20220503
  3. IMFINZI [Suspect]
     Active Substance: DURVALUMAB
     Indication: Lung neoplasm malignant
     Dosage: 500.0MG UNKNOWN
     Route: 040
     Dates: start: 20220608, end: 20220608
  4. BIOFENAC [Concomitant]
     Indication: Back pain
  5. SOLU-MEDROL [Concomitant]
     Active Substance: METHYLPREDNISOLONE SODIUM SUCCINATE
     Indication: Toxic skin eruption
  6. CLINDAMYCIN HYDROCHLORIDE [Concomitant]
     Active Substance: CLINDAMYCIN HYDROCHLORIDE
  7. TRAMADOL [Concomitant]
     Active Substance: TRAMADOL
     Indication: Back pain
  8. PREDNISON LIQUID [Concomitant]
     Indication: Toxic skin eruption
     Dosage: 1-0-0, 20 MG DAILY
     Route: 048
     Dates: start: 20220509, end: 20220607

REACTIONS (3)
  - Toxic skin eruption [Recovered/Resolved]
  - Back pain [Recovering/Resolving]
  - Intervertebral discitis [Recovering/Resolving]

NARRATIVE: CASE EVENT DATE: 20220312
